FAERS Safety Report 23564777 (Version 3)
Quarter: 2024Q1

REPORT INFORMATION
  Report Type: Spontaneous
  Country: CA (occurrence: CA)
  Receive Date: 20240226
  Receipt Date: 20240308
  Transmission Date: 20240410
  Serious: Yes (Hospitalization, Other)
  Sender: FDA-Public Use
  Company Number: CA-PFIZER INC-202400046465

PATIENT
  Age: 15 Year
  Sex: Male

DRUGS (1)
  1. ABRILADA [Suspect]
     Active Substance: ADALIMUMAB-AFZB
     Indication: Crohn^s disease
     Dosage: 1 DF, 160 MG ON WEEK 0, 80 MG ON WEEK 2 THEN 40 MG EVERY OTHER WEEK FROM WEEK 4
     Route: 058
     Dates: start: 20231218, end: 2024

REACTIONS (6)
  - Condition aggravated [Not Recovered/Not Resolved]
  - Anaemia [Unknown]
  - Heart rate increased [Not Recovered/Not Resolved]
  - Fatigue [Not Recovered/Not Resolved]
  - Dizziness [Not Recovered/Not Resolved]
  - Drug ineffective [Unknown]

NARRATIVE: CASE EVENT DATE: 20240101
